FAERS Safety Report 8620034-0 (Version None)
Quarter: 2012Q3

REPORT INFORMATION
  Report Type: 
  Country: None (occurrence: None)
  Receive Date: 20120824
  Receipt Date: 20120821
  Transmission Date: 20120928
  Serious: Yes (Life-Threatening, Hospitalization, Other)
  Sender: FDA-Public Use
  Company Number: PHHY2012JP038856

PATIENT
  Sex: Male
  Weight: 52 kg

DRUGS (21)
  1. CLOZARIL [Suspect]
     Dosage: 175MG, DAILY
     Route: 048
     Dates: start: 20120210, end: 20120212
  2. CLOZARIL [Suspect]
     Dosage: 200 MG, DAILY
     Route: 048
     Dates: start: 20120213, end: 20120216
  3. LITHIUM CARBONATE [Concomitant]
     Dosage: 60 MG, UNK
     Route: 048
     Dates: end: 20120703
  4. CLOZARIL [Suspect]
     Dosage: 50 MG, DAILY
     Route: 048
     Dates: start: 20120123, end: 20120126
  5. CLOZARIL [Suspect]
     Dosage: 75 MG, DAILY
     Route: 048
     Dates: start: 20120127, end: 20120129
  6. CLOZARIL [Suspect]
     Dosage: 150 MG, DAILY
     Route: 048
     Dates: start: 20120206, end: 20120209
  7. CLOZARIL [Suspect]
     Dosage: 250 MG, DAILY
     Route: 048
     Dates: start: 20120302, end: 20120329
  8. CLOZARIL [Suspect]
     Dosage: 375 MG, DAILY
     Route: 048
     Dates: start: 20120406, end: 20120412
  9. CLOZARIL [Suspect]
     Indication: SCHIZOPHRENIA, PARANOID TYPE
     Dosage: 500 MG, DAILY
     Route: 048
     Dates: start: 20120119
  10. CLOZARIL [Suspect]
     Dosage: 25 MG, DAILY
     Route: 048
     Dates: start: 20120120, end: 20120122
  11. CLOZARIL [Suspect]
     Dosage: 275 MG, DAILY
     Route: 048
     Dates: start: 20120224, end: 20120301
  12. CLOZARIL [Suspect]
     Dosage: 300MG, DAILY
     Route: 048
     Dates: start: 20120330, end: 20120405
  13. CLOZARIL [Suspect]
     Dosage: 450 MG, DAILY
     Route: 048
     Dates: start: 20120413
  14. LITHIUM CARBONATE [Concomitant]
     Indication: WHITE BLOOD CELL COUNT ABNORMAL
     Dosage: 600 MG, UNK
     Route: 048
     Dates: start: 20120110
  15. ARTANE [Concomitant]
     Dosage: 8 MG
     Route: 048
     Dates: start: 20110908, end: 20120314
  16. CLOZARIL [Suspect]
     Dosage: 12.5 MG, DAILY
     Route: 048
     Dates: start: 20120119, end: 20120119
  17. CLOZARIL [Suspect]
     Dosage: 100 MG, DAILY
     Route: 048
     Dates: start: 20120130, end: 20120202
  18. CLOZARIL [Suspect]
     Dosage: 600 MG DAILY
     Route: 048
     Dates: start: 20120427, end: 20120428
  19. CLOZARIL [Suspect]
     Dosage: 125 MG, DAILY
     Route: 048
     Dates: start: 20120203, end: 20120205
  20. CLOZARIL [Suspect]
     Dosage: 225 MG, DAILY
     Route: 048
     Dates: start: 20120217, end: 20120223
  21. CLOZARIL [Suspect]
     Dosage: 400 MG DAILY
     Route: 048
     Dates: start: 20120429

REACTIONS (5)
  - GRAND MAL CONVULSION [None]
  - LOSS OF CONSCIOUSNESS [None]
  - TACHYCARDIA [None]
  - ENTERITIS INFECTIOUS [None]
  - WHITE BLOOD CELL COUNT INCREASED [None]
